FAERS Safety Report 24092137 (Version 1)
Quarter: 2024Q3

REPORT INFORMATION
  Report Type: Spontaneous
  Country: FR (occurrence: FR)
  Receive Date: 20240715
  Receipt Date: 20240715
  Transmission Date: 20241017
  Serious: Yes (Disabling)
  Sender: MYLAN
  Company Number: None

PATIENT
  Age: 15 Year
  Sex: Male
  Weight: 38.1 kg

DRUGS (22)
  1. ETOPOSIDE [Suspect]
     Active Substance: ETOPOSIDE
     Indication: B-cell lymphoma
     Dosage: 260 MILLIGRAM, QD
     Route: 042
     Dates: start: 20240115, end: 20240117
  2. ETOPOSIDE [Suspect]
     Active Substance: ETOPOSIDE
     Dosage: 260 MILLIGRAM, QD
     Route: 042
     Dates: start: 20240203, end: 20240205
  3. VANCOMYCIN [Suspect]
     Active Substance: VANCOMYCIN
     Indication: Sepsis
     Dosage: 1140 MILLIGRAM, QD
     Route: 042
     Dates: start: 20240218
  4. METHOTREXATE [Suspect]
     Active Substance: METHOTREXATE
     Indication: B-cell lymphoma
     Dosage: 3950 MILLIGRAM, 1 TOTAL
     Route: 042
     Dates: start: 20231223, end: 20231223
  5. METHOTREXATE [Suspect]
     Active Substance: METHOTREXATE
     Dosage: 15 MILLIGRAM,1 TOTAL
     Route: 037
     Dates: start: 20231204, end: 20231204
  6. METHOTREXATE [Suspect]
     Active Substance: METHOTREXATE
     Dosage: 15 MILLIGRAM, 1 TOTAL
     Route: 037
     Dates: start: 20231224, end: 20231224
  7. METHOTREXATE [Suspect]
     Active Substance: METHOTREXATE
     Dosage: 3950 MILLIGRAM, 1 TOTAL
     Route: 042
     Dates: start: 20231203, end: 20231203
  8. AMIKACIN [Suspect]
     Active Substance: AMIKACIN
     Indication: Sepsis
     Dosage: 770 MILLIGRAM, QD
     Route: 042
     Dates: start: 20240217, end: 20240218
  9. MEROPENEM [Suspect]
     Active Substance: MEROPENEM
     Indication: Sepsis
     Dosage: 770 MILLIGRAM, QD
     Route: 042
     Dates: start: 20240217, end: 20240226
  10. DOXORUBICIN [Suspect]
     Active Substance: DOXORUBICIN
     Indication: B-cell lymphoma
     Dosage: 78 MILLIGRAM, 1 TOTAL
     Route: 042
     Dates: start: 20231224, end: 20231224
  11. DOXORUBICIN [Suspect]
     Active Substance: DOXORUBICIN
     Dosage: 80 MILLIGRAM,1 TOTAL
     Route: 042
     Dates: start: 20231204, end: 20231204
  12. RITUXIMAB [Suspect]
     Active Substance: RITUXIMAB
     Indication: B-cell lymphoma
     Dosage: 490 MILLIGRAM, QD
     Route: 042
     Dates: start: 20240112, end: 20240112
  13. RITUXIMAB [Suspect]
     Active Substance: RITUXIMAB
     Dosage: 490 MILLIGRAM, QD
     Route: 042
     Dates: start: 20231220, end: 20231220
  14. VINCRISTINE SULFATE [Suspect]
     Active Substance: VINCRISTINE SULFATE
     Indication: B-cell lymphoma
     Dosage: 2 MILLIGRAM, TOTAL
     Route: 042
     Dates: start: 20231223, end: 20231223
  15. VINCRISTINE SULFATE [Suspect]
     Active Substance: VINCRISTINE SULFATE
     Dosage: 1.3 MILLIGRAM, TOTAL
     Route: 042
     Dates: start: 20231125, end: 20231125
  16. VINCRISTINE SULFATE [Suspect]
     Active Substance: VINCRISTINE SULFATE
     Dosage: 2 MILLIGRAM, TOTAL
     Route: 042
     Dates: start: 20231203, end: 20231203
  17. CYTARABINE [Suspect]
     Active Substance: CYTARABINE
     Indication: B-cell lymphoma
     Dosage: 132 MILLIGRAM, QD
     Route: 042
     Dates: start: 20240113, end: 20240114
  18. CYTARABINE [Suspect]
     Active Substance: CYTARABINE
     Dosage: 3900 MILLIGRAM, QD
     Route: 042
     Dates: start: 20240114, end: 20240115
  19. CYTARABINE [Suspect]
     Active Substance: CYTARABINE
     Dosage: 3900 MILLIGRAM, QD
     Route: 042
     Dates: start: 20240205, end: 20240206
  20. CYCLOPHOSPHAMIDE [Suspect]
     Active Substance: CYCLOPHOSPHAMIDE
     Indication: B-cell lymphoma
     Dosage: 400 MILLIGRAM, 1 TOTAL
     Route: 042
     Dates: start: 20231125, end: 20231125
  21. CYCLOPHOSPHAMIDE [Suspect]
     Active Substance: CYCLOPHOSPHAMIDE
     Dosage: 660 MILLIGRAM, QD
     Route: 042
     Dates: start: 20231204, end: 20231207
  22. HYDROCORTISONE [Concomitant]
     Active Substance: HYDROCORTISONE\HYDROCORTISONE ACETATE
     Indication: Sepsis
     Dosage: 15 MILLIGRAM, 2 TOTAL
     Route: 037
     Dates: start: 20231204, end: 20231224

REACTIONS (1)
  - Quadriparesis [Not Recovered/Not Resolved]

NARRATIVE: CASE EVENT DATE: 20240219
